FAERS Safety Report 7415379-6 (Version None)
Quarter: 2011Q2

REPORT INFORMATION
  Report Type: 
  Country: None (occurrence: None)
  Receive Date: 20110414
  Receipt Date: 20110407
  Transmission Date: 20111010
  Serious: Yes (Hospitalization)
  Sender: FDA-Public Use
  Company Number: B0710765A

PATIENT
  Sex: Female

DRUGS (3)
  1. GLYCEOL [Concomitant]
     Dosage: 400ML PER DAY
     Route: 042
     Dates: start: 20110325, end: 20110407
  2. ZOVIRAX [Suspect]
     Indication: MENINGITIS
     Dosage: 30MGK PER DAY
     Route: 042
     Dates: start: 20110325, end: 20110327
  3. ROCEPHIN [Concomitant]
     Indication: INFECTION PROPHYLAXIS
     Dosage: 1G PER DAY
     Route: 042
     Dates: start: 20110325, end: 20110331

REACTIONS (7)
  - RENAL DISORDER [None]
  - DISORIENTATION [None]
  - ENCEPHALOPATHY [None]
  - ALTERED STATE OF CONSCIOUSNESS [None]
  - ENCEPHALITIS [None]
  - APRAXIA [None]
  - BLOOD CREATININE INCREASED [None]
